FAERS Safety Report 7362004-9 (Version None)
Quarter: 2011Q1

REPORT INFORMATION
  Report Type: 
  Country: None (occurrence: None)
  Receive Date: 20110318
  Receipt Date: 20110317
  Transmission Date: 20110831
  Serious: Yes (Death, Hospitalization)
  Sender: FDA-Public Use
  Company Number: DE-ELI_LILLY_AND_COMPANY-DE201103005349

PATIENT
  Sex: Male

DRUGS (3)
  1. METFORMIN HCL [Concomitant]
  2. BYETTA [Suspect]
     Indication: TYPE 2 DIABETES MELLITUS
     Dosage: 10 UG, 2/D
     Route: 058
     Dates: start: 20090401, end: 20100620
  3. DRUG USED IN DIABETES [Concomitant]

REACTIONS (1)
  - PANCREATITIS NECROTISING [None]
